FAERS Safety Report 10464351 (Version 4)
Quarter: 2014Q4

REPORT INFORMATION
  Report Type: Report from Study
  Country: JP (occurrence: JP)
  Receive Date: 20140919
  Receipt Date: 20141030
  Transmission Date: 20150528
  Serious: Yes (Hospitalization)
  Sender: FDA-Public Use
  Company Number: PHHO2014JP012498

PATIENT
  Age: 70 Year
  Sex: Female
  Weight: 44 kg

DRUGS (4)
  1. ACLASTA [Suspect]
     Active Substance: ZOLEDRONIC ACID
     Indication: OSTEOPOROSIS
     Dosage: 5.33 MG, 1/1 YEAR
     Route: 041
     Dates: start: 20130130, end: 20130130
  2. ACLASTA [Suspect]
     Active Substance: ZOLEDRONIC ACID
     Dosage: 5.33 MG, 1/1 YEAR
     Route: 041
     Dates: start: 20140203, end: 20140203
  3. KARY UNI [Concomitant]
     Active Substance: PIRENOXINE
     Dosage: UNK
     Route: 047
  4. WADACALCIUM [Concomitant]
     Active Substance: CALCIUM CITRATE\CALCIUM LACTATE\CALCIUM PHOSPHATE
     Dosage: 4 DF, QD
     Route: 048
     Dates: start: 20121217

REACTIONS (1)
  - Liver abscess [Recovering/Resolving]

NARRATIVE: CASE EVENT DATE: 20140904
